FAERS Safety Report 20375442 (Version 1)
Quarter: 2022Q1

REPORT INFORMATION
  Report Type: Spontaneous
  Country: US (occurrence: None)
  Receive Date: 20220125
  Receipt Date: 20220125
  Transmission Date: 20220423
  Serious: No
  Sender: FDA-Public Use
  Company Number: None

PATIENT
  Sex: Male

DRUGS (1)
  1. SIMPONI ARIA [Suspect]
     Active Substance: GOLIMUMAB
     Indication: Ankylosing spondylitis
     Dosage: OTHER FREQUENCY : EVERY 8 WEEKS;?
     Route: 042
     Dates: start: 201604

REACTIONS (7)
  - Rash [None]
  - Rash [None]
  - Sunburn [None]
  - Myalgia [None]
  - Arthralgia [None]
  - Chest pain [None]
  - Dyspnoea [None]
